FAERS Safety Report 20613467 (Version 2)
Quarter: 2022Q1

REPORT INFORMATION
  Report Type: Spontaneous
  Country: GB (occurrence: GB)
  Receive Date: 20220319
  Receipt Date: 20220323
  Transmission Date: 20220423
  Serious: Yes (Other)
  Sender: FDA-Public Use
  Company Number: GB-PFIZER INC-202200320479

PATIENT
  Age: 65 Year
  Sex: Male

DRUGS (13)
  1. MEROPENEM [Suspect]
     Active Substance: MEROPENEM
     Indication: Febrile neutropenia
     Dosage: UNK
     Route: 065
  2. MEROPENEM [Suspect]
     Active Substance: MEROPENEM
     Dosage: UNK
     Route: 065
  3. VORICONAZOLE [Suspect]
     Active Substance: VORICONAZOLE
     Indication: Product used for unknown indication
     Dosage: 4 MILLIGRAM/KILOGRAM, TWO TIMES A DAY (4 MG/KG, 2X/DAY (BD))
     Route: 065
  4. VORICONAZOLE [Suspect]
     Active Substance: VORICONAZOLE
     Dosage: 6 MILLIGRAM/KILOGRAM, TWO TIMES A DAY (6 MG/KG, 2X/DAY (BD LOADING DOSE FOR 24HOURS))
     Route: 065
  5. VORICONAZOLE [Suspect]
     Active Substance: VORICONAZOLE
     Dosage: 4 MG/KG, BID
     Route: 065
  6. VORICONAZOLE [Suspect]
     Active Substance: VORICONAZOLE
     Dosage: 6 MG/KG, BID
     Route: 065
  7. AMBISOME [Suspect]
     Active Substance: AMPHOTERICIN B
     Indication: Product used for unknown indication
     Dosage: 3 MILLIGRAM/KILOGRAM(3 MG/KG   )
     Route: 065
  8. AMBISOME [Suspect]
     Active Substance: AMPHOTERICIN B
     Dosage: 3 MG/KG
     Route: 065
  9. AMIKACIN SULFATE [Suspect]
     Active Substance: AMIKACIN SULFATE
     Indication: Febrile neutropenia
     Dosage: UNK
     Route: 065
  10. AMIKACIN SULFATE [Suspect]
     Active Substance: AMIKACIN SULFATE
     Indication: Febrile neutropenia
     Dosage: UNK
     Route: 065
  11. PIPERACILLIN SODIUM\TAZOBACTAM SODIUM [Suspect]
     Active Substance: PIPERACILLIN SODIUM\TAZOBACTAM SODIUM
     Indication: Febrile neutropenia
     Dosage: UNK
     Route: 065
  12. PIPERACILLIN SODIUM\TAZOBACTAM SODIUM [Suspect]
     Active Substance: PIPERACILLIN SODIUM\TAZOBACTAM SODIUM
     Dosage: UNK
     Route: 065
  13. POSACONAZOLE [Concomitant]
     Active Substance: POSACONAZOLE
     Indication: Prophylaxis
     Dosage: UNK
     Route: 065

REACTIONS (8)
  - Aspergillus test positive [Unknown]
  - Blood creatinine abnormal [Unknown]
  - C-reactive protein increased [Unknown]
  - Confusional state [Unknown]
  - Hallucination [Unknown]
  - Procalcitonin increased [Unknown]
  - Pulmonary mass [Recovered/Resolved]
  - Drug ineffective [Unknown]
